FAERS Safety Report 19518476 (Version 1)
Quarter: 2021Q3

REPORT INFORMATION
  Report Type: Spontaneous
  Country: US (occurrence: US)
  Receive Date: 20210709
  Receipt Date: 20210709
  Transmission Date: 20211014
  Serious: No
  Sender: FDA-Public Use
  Company Number: None

PATIENT
  Age: 86 Year
  Sex: Female
  Weight: 68.4 kg

DRUGS (5)
  1. AMLODIPINE?BENAZEPRIL 5?10MG [Concomitant]
  2. CAPECITABINE. [Suspect]
     Active Substance: CAPECITABINE
     Indication: PANCREATIC CARCINOMA
     Route: 048
     Dates: start: 20210619, end: 20210709
  3. OXYCODONE 5MG [Concomitant]
     Active Substance: OXYCODONE
  4. GEMCITABINE. [Suspect]
     Active Substance: GEMCITABINE
     Indication: PANCREATIC CARCINOMA
     Dosage: ?          OTHER FREQUENCY:DAY 1, 8 Q21 DAYS;?
     Route: 042
     Dates: start: 20210619, end: 20210709
  5. ATENOLOL 25MG [Concomitant]
     Active Substance: ATENOLOL

REACTIONS (1)
  - Hospice care [None]

NARRATIVE: CASE EVENT DATE: 20210709
